FAERS Safety Report 17130525 (Version 1)
Quarter: 2019Q4

REPORT INFORMATION
  Report Type: Spontaneous
  Country: CO (occurrence: CO)
  Receive Date: 20191209
  Receipt Date: 20191209
  Transmission Date: 20200122
  Serious: Yes (Hospitalization)
  Sender: FDA-Public Use
  Company Number: CO-BIOMARINAP-CO-2019-127166

PATIENT

DRUGS (1)
  1. VIMIZIM [Suspect]
     Active Substance: ELOSULFASE ALFA
     Indication: MUCOPOLYSACCHARIDOSIS IV
     Dosage: 70 MILLIGRAM, QW
     Route: 042
     Dates: start: 20180628

REACTIONS (8)
  - Bacteraemia [Unknown]
  - Chest pain [Unknown]
  - Haemodynamic instability [Unknown]
  - Rhinorrhoea [Unknown]
  - Product dose omission [Unknown]
  - Respiratory symptom [Unknown]
  - Pneumonia [Unknown]
  - Nasal congestion [Unknown]

NARRATIVE: CASE EVENT DATE: 20191122
